FAERS Safety Report 11727596 (Version 3)
Quarter: 2015Q4

REPORT INFORMATION
  Report Type: Report from Study
  Country: JP (occurrence: JP)
  Receive Date: 20151112
  Receipt Date: 20151231
  Transmission Date: 20160304
  Serious: Yes (Hospitalization)
  Sender: FDA-Public Use
  Company Number: JP-PFIZER INC-2015376345

PATIENT
  Age: 72 Year
  Sex: Male
  Weight: 59 kg

DRUGS (12)
  1. KARI UNI [Concomitant]
     Indication: CATARACT
     Dosage: UNK, AS NEEDED
  2. COBALUM [Concomitant]
     Indication: CATARACT
     Dosage: UNK, AS NEEDED
  3. SENNA LIQUID EXTRACT [Concomitant]
     Indication: CONSTIPATION
     Dosage: UNK UNK, AS NEEDED
     Dates: start: 20150616
  4. MAGNESIUM OXIDE. [Concomitant]
     Active Substance: MAGNESIUM OXIDE
     Indication: CONSTIPATION
     Dosage: 330 MG, 3X/DAY
     Route: 048
     Dates: start: 20150616
  5. PICOSULFATE [Concomitant]
     Active Substance: SODIUM PICOSULFATE
     Indication: CONSTIPATION
     Dosage: UNK UNK, AS NEEDED
     Dates: start: 20150624
  6. XALKORI [Suspect]
     Active Substance: CRIZOTINIB
     Dosage: 250 MG, 2X/DAY
     Route: 048
     Dates: start: 20151031, end: 20151102
  7. BISACODYL. [Concomitant]
     Active Substance: BISACODYL
     Indication: CONSTIPATION
     Dosage: UNK UNK, AS NEEDED
     Route: 054
     Dates: start: 20150614
  8. AZUNOL [Concomitant]
     Active Substance: SODIUM GUALENATE
     Indication: STOMATITIS
     Dosage: UNK, AS NEEDED
     Dates: start: 20150624
  9. XALKORI [Suspect]
     Active Substance: CRIZOTINIB
     Indication: LUNG ADENOCARCINOMA
     Dosage: 250 MG, 2X/DAY
     Route: 048
     Dates: start: 20150610, end: 20151030
  10. DEXAMETHASONE. [Concomitant]
     Active Substance: DEXAMETHASONE
     Indication: STOMATITIS
     Dosage: UNK UNK, AS NEEDED
     Dates: start: 20150624
  11. BUTYRIC ACID [Concomitant]
     Active Substance: BUTYRIC ACID
     Indication: DIARRHOEA
     Dosage: UNK, AS NEEDED
     Route: 048
     Dates: start: 20150612
  12. LANSOPRAZOLE. [Concomitant]
     Active Substance: LANSOPRAZOLE
     Indication: UPPER RESPIRATORY TRACT INFECTION
     Dosage: 15 MG, 1X/DAY
     Route: 048
     Dates: start: 20150921

REACTIONS (1)
  - Muscle abscess [Recovering/Resolving]

NARRATIVE: CASE EVENT DATE: 20151021
